FAERS Safety Report 22036550 (Version 1)
Quarter: 2023Q1

REPORT INFORMATION
  Report Type: Spontaneous
  Country: US (occurrence: None)
  Receive Date: 20230223
  Receipt Date: 20230223
  Transmission Date: 20230417
  Serious: Yes (Hospitalization)
  Sender: FDA-Public Use
  Company Number: None

PATIENT
  Sex: Male

DRUGS (4)
  1. CAPECITABINE [Suspect]
     Active Substance: CAPECITABINE
     Indication: Product used for unknown indication
     Dosage: 500 MG ORAL??TAKE 2 TABLETS BY MOUTH EVERY MORNING AND 1 TABLET BY MOUTH EVERY EVENING, TAKE EVERY 1
     Route: 048
     Dates: start: 20200403
  2. PRAVASTATIN [Concomitant]
     Active Substance: PRAVASTATIN
  3. PRILOSEC [Concomitant]
  4. XARELTO [Concomitant]
     Active Substance: RIVAROXABAN

REACTIONS (1)
  - Liver operation [None]
